FAERS Safety Report 6276154-1 (Version None)
Quarter: 2009Q3

REPORT INFORMATION
  Report Type: 
  Country: None (occurrence: None)
  Receive Date: 20090717
  Receipt Date: 20090717
  Transmission Date: 20100115
  Serious: Yes (Life-Threatening, Hospitalization)
  Sender: FDA-Public Use
  Company Number: None

PATIENT
  Sex: Female
  Weight: 54.4316 kg

DRUGS (2)
  1. AMOXICILLIN [Suspect]
     Indication: DENTAL DISCOMFORT
     Dosage: 1 CAPSULE 3 TIMES A DAY
     Dates: start: 20090611
  2. AMOXICILLIN [Suspect]
     Indication: ENDODONTIC PROCEDURE
     Dosage: 1 CAPSULE 3 TIMES A DAY
     Dates: start: 20090611

REACTIONS (9)
  - AMNESIA [None]
  - CHEST PAIN [None]
  - EMOTIONAL DISORDER [None]
  - FALL [None]
  - JOINT INJURY [None]
  - LACERATION [None]
  - PAIN [None]
  - PRURITUS [None]
  - RASH PAPULAR [None]
